FAERS Safety Report 8734518 (Version 5)
Quarter: 2013Q1

REPORT INFORMATION
  Report Type: Report from Study
  Country: US (occurrence: US)
  Receive Date: 20120821
  Receipt Date: 20130312
  Transmission Date: 20140127
  Serious: Yes (Life-Threatening, Hospitalization)
  Sender: FDA-Public Use
  Company Number: US-JNJFOC-20120809572

PATIENT
  Age: 16 Year
  Sex: Female

DRUGS (15)
  1. REMICADE [Suspect]
     Indication: CROHN^S DISEASE
     Route: 042
     Dates: start: 20100420
  2. REMICADE [Suspect]
     Indication: CROHN^S DISEASE
     Route: 042
     Dates: start: 20100607
  3. ACETAMINOPHEN [Suspect]
  4. ACETAMINOPHEN [Suspect]
     Indication: PRODUCT USED FOR UNKNOWN INDICATION
  5. 5-ASA [Concomitant]
     Route: 048
  6. ANTIBIOTICS [Concomitant]
     Indication: IRRITABLE BOWEL SYNDROME
  7. PROBIOTICS [Concomitant]
  8. SYSTEMIC CORTICOSTEROIDS [Concomitant]
     Route: 042
  9. 6-MERCAPTOPURINE [Concomitant]
     Dates: start: 20061120
  10. 6-MERCAPTOPURINE [Concomitant]
     Dates: start: 20110427
  11. TRAZODONE [Concomitant]
  12. KLONOPIN [Concomitant]
  13. CELEXA [Concomitant]
  14. SEASONIQUE [Concomitant]
  15. NEURONTIN [Concomitant]

REACTIONS (1)
  - Accidental overdose [Recovered/Resolved]
